FAERS Safety Report 6248588-2 (Version None)
Quarter: 2009Q2

REPORT INFORMATION
  Report Type: 
  Country: None (occurrence: None)
  Receive Date: 20090624
  Receipt Date: 20090624
  Transmission Date: 20091009
  Serious: Yes (Life-Threatening)
  Sender: FDA-Public Use
  Company Number: None

PATIENT
  Age: 66 Year
  Sex: Male
  Weight: 90 kg

DRUGS (6)
  1. HEPARIN [Suspect]
     Indication: PROPHYLAXIS
     Dosage: 1500 UNITS/HR IV
     Route: 042
     Dates: start: 20090330
  2. WARFARIN [Concomitant]
  3. PLAVIX [Concomitant]
  4. FISH OIL [Concomitant]
  5. LIPITOR [Concomitant]
  6. METOPROLOL [Concomitant]

REACTIONS (2)
  - HAEMORRHAGE [None]
  - RETROPERITONEAL HAEMORRHAGE [None]
